FAERS Safety Report 10687217 (Version 1)
Quarter: 2014Q4

REPORT INFORMATION
  Report Type: Spontaneous
  Country: US (occurrence: None)
  Receive Date: 20141230
  Receipt Date: 20141230
  Transmission Date: 20150529
  Serious: Yes (Other)
  Sender: FDA-Public Use
  Company Number: CA14-0643

PATIENT
  Age: 63 Year
  Sex: Female

DRUGS (1)
  1. ENOXAPARIN SODIUM (INJECTION) [Suspect]
     Active Substance: ENOXAPARIN SODIUM

REACTIONS (5)
  - Syringe issue [None]
  - Product quality issue [None]
  - Haemorrhage [None]
  - Scratch [None]
  - Injury associated with device [None]
